FAERS Safety Report 18311713 (Version 2)
Quarter: 2020Q4

REPORT INFORMATION
  Report Type: Spontaneous
  Country: US (occurrence: US)
  Receive Date: 20200925
  Receipt Date: 20201015
  Transmission Date: 20210113
  Serious: Yes (Other)
  Sender: FDA-Public Use
  Company Number: US-009507513-2009USA009666

PATIENT
  Age: 25 Year
  Sex: Female
  Weight: 115.7 kg

DRUGS (4)
  1. EXCEDRIN MIGRAINE [Concomitant]
     Active Substance: ACETAMINOPHEN\ASPIRIN\CAFFEINE
     Indication: HEADACHE
     Dosage: 2 TABLETS AS NEEDED
     Route: 048
  2. DEPO-PROVERA [Concomitant]
     Active Substance: MEDROXYPROGESTERONE ACETATE
     Dosage: 1 MILLILITER IN MUSCLE EVERY 3 MONTHS
     Route: 030
  3. IMPLANON [Suspect]
     Active Substance: ETONOGESTREL
     Indication: CONTRACEPTION
     Dosage: 1 IMPLANT, LEFT ARM
     Route: 059
     Dates: start: 2011
  4. ASCORBIC ACID. [Concomitant]
     Active Substance: ASCORBIC ACID
     Dosage: 1000 MG, QD, VITAMIN C
     Route: 048

REACTIONS (15)
  - Complication associated with device [Recovered/Resolved]
  - Complication of device removal [Not Recovered/Not Resolved]
  - Weight decreased [Unknown]
  - Complication of device removal [Not Recovered/Not Resolved]
  - Back pain [Unknown]
  - Incorrect product administration duration [Unknown]
  - Device dislocation [Not Recovered/Not Resolved]
  - Implant site fibrosis [Not Recovered/Not Resolved]
  - Weight increased [Not Recovered/Not Resolved]
  - Abdominal pain [Unknown]
  - Pain in extremity [Unknown]
  - Hot flush [Unknown]
  - Hyperhidrosis [Unknown]
  - Appetite disorder [Unknown]
  - Nausea [Unknown]

NARRATIVE: CASE EVENT DATE: 2014
